FAERS Safety Report 23739053 (Version 1)
Quarter: 2024Q2

REPORT INFORMATION
  Report Type: Spontaneous
  Country: JP (occurrence: JP)
  Receive Date: 20240413
  Receipt Date: 20240413
  Transmission Date: 20240716
  Serious: Yes (Other)
  Sender: FDA-Public Use
  Company Number: JP-ABBVIE-5716003

PATIENT
  Age: 50 Year
  Sex: Female

DRUGS (1)
  1. SKYRIZI [Suspect]
     Active Substance: RISANKIZUMAB-RZAA
     Indication: Palmoplantar pustulosis
     Dosage: FORM STRENGTH: 150 MILLIGRAM?DURATION TEXT: 2 TIMES
     Route: 058
     Dates: start: 20240115

REACTIONS (1)
  - Breast cancer female [Unknown]

NARRATIVE: CASE EVENT DATE: 20240313
